FAERS Safety Report 16041788 (Version 1)
Quarter: 2019Q1

REPORT INFORMATION
  Report Type: Spontaneous
  Country: US (occurrence: US)
  Receive Date: 20190306
  Receipt Date: 20190306
  Transmission Date: 20190418
  Serious: No
  Sender: FDA-Public Use
  Company Number: US-AKORN PHARMACEUTICALS-2018AKN00432

PATIENT
  Age: 17 Year
  Sex: Male
  Weight: 65.76 kg

DRUGS (4)
  1. DIFFERIN [Suspect]
     Active Substance: ADAPALENE
     Dosage: UNK, 1X/DAY
     Dates: end: 201803
  2. BENZOYL PEROXIDE WASH [Suspect]
     Active Substance: BENZOYL PEROXIDE
     Dosage: UNK, 2X/DAY
     Route: 061
     Dates: end: 201803
  3. CLINDAMYCIN. [Suspect]
     Active Substance: CLINDAMYCIN
     Dosage: UNK, 1X/DAY
     Dates: end: 201803
  4. MYORISAN [Suspect]
     Active Substance: ISOTRETINOIN
     Indication: ACNE
     Dosage: 30 MG, 1X/DAY
     Route: 048
     Dates: start: 20180216, end: 20180328

REACTIONS (8)
  - Dry skin [Not Recovered/Not Resolved]
  - Lip exfoliation [Not Recovered/Not Resolved]
  - Skin exfoliation [Not Recovered/Not Resolved]
  - Lip erythema [Not Recovered/Not Resolved]
  - Erythema [Not Recovered/Not Resolved]
  - Off label use [Recovered/Resolved]
  - Discomfort [Not Recovered/Not Resolved]
  - Lip dry [Not Recovered/Not Resolved]

NARRATIVE: CASE EVENT DATE: 2018
